FAERS Safety Report 12600388 (Version 2)
Quarter: 2016Q3

REPORT INFORMATION
  Report Type: Spontaneous
  Country: US (occurrence: US)
  Receive Date: 20160727
  Receipt Date: 20160916
  Transmission Date: 20161109
  Serious: No
  Sender: FDA-Public Use
  Company Number: US-ASTRAZENECA-2016SE76423

PATIENT
  Sex: Female

DRUGS (1)
  1. PULMICORT FLEXHALER [Suspect]
     Active Substance: BUDESONIDE
     Dosage: 180MCG, 2 PUFFS TWICE A DAY
     Route: 055
     Dates: start: 20160712

REACTIONS (2)
  - Device issue [Unknown]
  - Malaise [Unknown]
